FAERS Safety Report 9459825 (Version 1)
Quarter: 2013Q3

REPORT INFORMATION
  Report Type: Spontaneous
  Country: US (occurrence: US)
  Receive Date: 20130815
  Receipt Date: 20130815
  Transmission Date: 20140515
  Serious: Yes (Other)
  Sender: FDA-Public Use
  Company Number: US-PFIZER INC-2013236021

PATIENT
  Age: 74 Year
  Sex: Female
  Weight: 93 kg

DRUGS (3)
  1. LYRICA [Suspect]
     Indication: DIABETIC NEUROPATHY
     Dosage: 50 MG, 2X/DAY
     Dates: start: 201308
  2. LYRICA [Suspect]
     Dosage: 50 MG, 1X/DAY
  3. METFORMIN HCL [Suspect]
     Indication: DIABETES MELLITUS
     Dosage: 500 MG, 2X/DAY

REACTIONS (3)
  - Blood glucose increased [Unknown]
  - Dizziness [Recovered/Resolved]
  - Balance disorder [Recovered/Resolved]
